FAERS Safety Report 5375436-5 (Version None)
Quarter: 2007Q2

REPORT INFORMATION
  Report Type: 
  Country: None (occurrence: None)
  Receive Date: 20070629
  Receipt Date: 20070620
  Transmission Date: 20071010
  Serious: Yes (Disabling)
  Sender: FDA-Public Use
  Company Number: CA-BOEHRINGER INGELHEIM PHARMACEUTICALS, INC.-2007-CN-00519CN

PATIENT
  Sex: Male

DRUGS (5)
  1. FLOMAX [Suspect]
     Dates: start: 20060201, end: 20060801
  2. HUMALOG [Concomitant]
  3. LANTUS [Concomitant]
  4. ALTACE [Concomitant]
  5. LIPITOR [Concomitant]

REACTIONS (2)
  - SEMEN VOLUME ABNORMAL [None]
  - SENSORY LOSS [None]
